FAERS Safety Report 5143370-1 (Version None)
Quarter: 2006Q4

REPORT INFORMATION
  Report Type: 
  Country: None (occurrence: None)
  Receive Date: 20061030
  Receipt Date: 20061017
  Transmission Date: 20070319
  Serious: Yes (Other)
  Sender: FDA-Public Use
  Company Number: 2006127396

PATIENT
  Age: 21 Year
  Sex: Male
  Weight: 98 kg

DRUGS (4)
  1. AZITHROMYCIN [Suspect]
     Indication: CHLAMYDIAL INFECTION
     Dosage: (1 GRAM, 1 IN 1 TOTAL), ORAL
     Route: 048
     Dates: start: 20060707, end: 20060707
  2. SALBUTAMOL (SALBUTAMOL) [Concomitant]
  3. SALMETEROL (SALMETEROL) [Concomitant]
  4. CROMOGLICATE SODIUM (CROMOGLICATE SODIUM) [Concomitant]

REACTIONS (2)
  - DYSARTHRIA [None]
  - TONGUE PARALYSIS [None]
